FAERS Safety Report 7056336-1 (Version None)
Quarter: 2010Q4

REPORT INFORMATION
  Report Type: 
  Country: None (occurrence: None)
  Receive Date: 20101021
  Receipt Date: 20101018
  Transmission Date: 20110411
  Serious: Yes (Hospitalization)
  Sender: FDA-Public Use
  Company Number: AU-AMGEN LTD.-AUSCT2010000219

PATIENT

DRUGS (1)
  1. PANITUMUMAB [Suspect]
     Indication: COLORECTAL CANCER METASTATIC
     Dosage: 430 MG, Q2WK
     Route: 042
     Dates: start: 20100906

REACTIONS (3)
  - DIARRHOEA [None]
  - URINARY TRACT INFECTION [None]
  - VOMITING [None]
